FAERS Safety Report 8520106 (Version 4)
Quarter: 2012Q4

REPORT INFORMATION
  Report Type: 
  Country: US (occurrence: US)
  Receive Date: 20120418
  Receipt Date: 20121015
  Transmission Date: 20130627
  Serious: Yes (Death, Other)
  Sender: FDA-Public Use
  Company Number: US-PFIZER INC-2012091257

PATIENT
  Age: 59 Year
  Sex: Male

DRUGS (3)
  1. INLYTA [Suspect]
     Indication: RENAL CANCER
     Dosage: 1 mg, 3 tablets daily
     Dates: start: 20120228
  2. INLYTA [Suspect]
     Dosage: 5 mg, 2x/day
     Dates: start: 20120301
  3. INLYTA [Suspect]
     Dosage: 5 mg, 2x/day
     Dates: start: 20120322

REACTIONS (7)
  - Death [Fatal]
  - Convulsion [Unknown]
  - Brain oedema [Unknown]
  - Tremor [Unknown]
  - Mucosal inflammation [Unknown]
  - Weight decreased [Unknown]
  - Fatigue [Unknown]
